FAERS Safety Report 8290302-3 (Version None)
Quarter: 2012Q2

REPORT INFORMATION
  Report Type: 
  Country: None (occurrence: None)
  Receive Date: 20120417
  Receipt Date: 20120409
  Transmission Date: 20120825
  Serious: Yes (Other)
  Sender: FDA-Public Use
  Company Number: PHHY2011BR86836

PATIENT
  Age: 72 Year
  Sex: Male
  Weight: 76 kg

DRUGS (11)
  1. LEVOTHYROXINE SODIUM [Concomitant]
     Indication: THYROID DISORDER
     Dosage: 75 UG, DAILY
     Route: 048
  2. DIOVAN HCT [Suspect]
     Indication: HYPERTENSION
     Dosage: 1 DF (160/12.5 MG), DAILY
     Route: 048
  3. DIOVAN HCT [Suspect]
     Dosage: 1 DF (320/12.5 MG), DAILY
     Route: 048
  4. ATENOLOL [Concomitant]
     Indication: HYPERTENSION
     Dosage: 50 MG, BID (MORNING + NIGHT)
     Route: 048
  5. RASILEZ [Concomitant]
     Dosage: 0.5 DF (300 MG), DAILY
  6. VASOGARD [Concomitant]
     Indication: PERIPHERAL VASCULAR DISORDER
     Dosage: 100 MG, DAILY
     Route: 048
  7. DIOVAN [Suspect]
     Indication: HYPERTENSION
     Dosage: 1 DF (UNK),DAILY
  8. SINVASTAMED [Concomitant]
     Indication: PERIPHERAL VASCULAR DISORDER
     Dosage: 20 MG, DAILY
     Route: 048
  9. PLAQUETAL [Concomitant]
     Indication: PERIPHERAL VASCULAR DISORDER
     Dosage: 250 MG, BID (MORNING AND NIGHT)
     Route: 048
  10. RASILEZ [Concomitant]
     Indication: HYPERTENSION
     Dosage: 150 MG, DAILY
     Route: 048
     Dates: end: 20120409
  11. NORVASC [Concomitant]
     Indication: HYPERTENSION
     Dosage: 5 MG, DAILY

REACTIONS (9)
  - OCULAR VASCULAR DISORDER [None]
  - BLOOD PRESSURE FLUCTUATION [None]
  - DIABETES MELLITUS [None]
  - BLOOD CREATININE INCREASED [None]
  - CEREBROVASCULAR ACCIDENT [None]
  - PAIN IN EXTREMITY [None]
  - BLINDNESS UNILATERAL [None]
  - GAIT DISTURBANCE [None]
  - VISUAL IMPAIRMENT [None]
